FAERS Safety Report 21873309 (Version 20)
Quarter: 2025Q4

REPORT INFORMATION
  Report Type: Report from Study
  Country: US (occurrence: US)
  Receive Date: 20230117
  Receipt Date: 20251127
  Transmission Date: 20260117
  Serious: Yes (Other)
  Sender: TAKEDA
  Company Number: US-TAKEDA-2021TUS080643

PATIENT
  Age: 51 Year
  Sex: Female
  Weight: 56.78 kg

DRUGS (14)
  1. BRIGATINIB [Suspect]
     Active Substance: BRIGATINIB
     Indication: Lung neoplasm malignant
     Dosage: 90 MILLIGRAM, QD
     Dates: start: 20211123
  2. BRIGATINIB [Suspect]
     Active Substance: BRIGATINIB
     Dosage: 180 MILLIGRAM, QD
  3. BRIGATINIB [Suspect]
     Active Substance: BRIGATINIB
     Dosage: 90 MILLIGRAM, QD
  4. BRIGATINIB [Suspect]
     Active Substance: BRIGATINIB
     Dosage: 90 MILLIGRAM, QD
  5. BRIGATINIB [Suspect]
     Active Substance: BRIGATINIB
     Dosage: 90 MILLIGRAM, QD
  6. BRIGATINIB [Suspect]
     Active Substance: BRIGATINIB
     Dosage: 90 MILLIGRAM, QD
  7. BRIGATINIB [Suspect]
     Active Substance: BRIGATINIB
     Dosage: 90 MILLIGRAM, QD
  8. BRIGATINIB [Suspect]
     Active Substance: BRIGATINIB
     Dosage: 90 MILLIGRAM, QD
  9. BRIGATINIB [Suspect]
     Active Substance: BRIGATINIB
     Dosage: UNK
  10. HYDROXYZINE [Suspect]
     Active Substance: HYDROXYZINE HYDROCHLORIDE
     Indication: Sleep disorder
     Dosage: UNK
  11. CLOBEX [Suspect]
     Active Substance: CLOBETASOL PROPIONATE
     Indication: Product used for unknown indication
     Dosage: UNK
  12. Sunscreen [Concomitant]
     Dosage: UNK
  13. IMODIUM [Concomitant]
     Active Substance: LOPERAMIDE HYDROCHLORIDE
     Dosage: UNK
  14. HOMEOPATHICS [Concomitant]
     Active Substance: HOMEOPATHICS
     Dosage: UNK

REACTIONS (53)
  - Nephrolithiasis [Unknown]
  - Lung neoplasm malignant [Unknown]
  - Headache [Unknown]
  - Miliaria [Recovering/Resolving]
  - Muscle disorder [Unknown]
  - Low density lipoprotein increased [Unknown]
  - Blood pressure decreased [Unknown]
  - Dry eye [Unknown]
  - Liver function test increased [Unknown]
  - Back disorder [Unknown]
  - Nerve injury [Unknown]
  - Wound [Unknown]
  - Drug hypersensitivity [Unknown]
  - Solar dermatitis [Unknown]
  - Gastrointestinal disorder [Unknown]
  - Cardiomegaly [Unknown]
  - Eye irritation [Unknown]
  - Eye pain [Unknown]
  - Mobility decreased [Unknown]
  - Intentional dose omission [Not Recovered/Not Resolved]
  - Product dose omission issue [Unknown]
  - Fatigue [Unknown]
  - Red blood cell count increased [Unknown]
  - Infection [Unknown]
  - Myalgia [Unknown]
  - Thirst [Unknown]
  - Conjunctivitis allergic [Unknown]
  - Trigger finger [Recovering/Resolving]
  - Dehydration [Unknown]
  - Palpitations [Recovering/Resolving]
  - Muscle spasms [Unknown]
  - Blood creatine phosphokinase increased [Unknown]
  - Blood cholesterol increased [Unknown]
  - Photosensitivity reaction [Unknown]
  - Pain in extremity [Unknown]
  - Abdominal discomfort [Unknown]
  - Dry mouth [Unknown]
  - Anaemia [Unknown]
  - Insomnia [Unknown]
  - Diarrhoea [Unknown]
  - Dyspnoea [Unknown]
  - Spinal disorder [Unknown]
  - Gastroenteritis viral [Unknown]
  - Heart rate increased [Unknown]
  - Muscular weakness [Unknown]
  - Balance disorder [Unknown]
  - Arthralgia [Unknown]
  - Migraine [Unknown]
  - Asthenia [Unknown]
  - Inflammation [Unknown]
  - Sleep disorder [Unknown]
  - Pain [Unknown]
  - Back pain [Unknown]

NARRATIVE: CASE EVENT DATE: 20211210
